FAERS Safety Report 12983171 (Version 2)
Quarter: 2025Q4

REPORT INFORMATION
  Report Type: Spontaneous
  Country: GB (occurrence: GB)
  Receive Date: 20161129
  Receipt Date: 20251205
  Transmission Date: 20260117
  Serious: Yes (Other)
  Sender: INCYTE
  Company Number: GB-002147023-PHFR2016GB009135

PATIENT
  Age: 51 Year

DRUGS (5)
  1. RUXOLITINIB [Suspect]
     Active Substance: RUXOLITINIB
     Indication: Myelofibrosis
     Dosage: 5 MG, BID
     Route: 065
  2. RUXOLITINIB [Suspect]
     Active Substance: RUXOLITINIB
     Dosage: 10 MG, BID
     Route: 065
  3. RUXOLITINIB [Suspect]
     Active Substance: RUXOLITINIB
     Dosage: 15 MG, BID
     Route: 065
  4. RUXOLITINIB [Suspect]
     Active Substance: RUXOLITINIB
     Dosage: 20 MG, BID
     Route: 065
  5. RUXOLITINIB [Suspect]
     Active Substance: RUXOLITINIB
     Dosage: 15 MG, QD
     Route: 065

REACTIONS (13)
  - Acute myeloid leukaemia [Unknown]
  - Chronic graft versus host disease [Unknown]
  - Cytomegalovirus infection reactivation [Unknown]
  - Bone marrow failure [Unknown]
  - Fatigue [Not Recovered/Not Resolved]
  - Hyperhidrosis [Recovering/Resolving]
  - Pruritus [Recovering/Resolving]
  - Bone pain [Not Recovered/Not Resolved]
  - Paraesthesia [Unknown]
  - Lymphadenopathy [Unknown]
  - Haemoglobin decreased [Unknown]
  - Platelet count decreased [Unknown]
  - Headache [Not Recovered/Not Resolved]
